FAERS Safety Report 24278902 (Version 1)
Quarter: 2024Q3

REPORT INFORMATION
  Report Type: Spontaneous
  Country: US (occurrence: None)
  Receive Date: 20240831
  Receipt Date: 20240831
  Transmission Date: 20241017
  Serious: Yes (Other)
  Sender: Public
  Company Number: None

PATIENT
  Age: 67 Year
  Sex: Female

DRUGS (4)
  1. SYNTHROID [Suspect]
     Active Substance: LEVOTHYROXINE SODIUM
     Indication: Hypothyroidism
     Dosage: 75 UG MDAILY ORAL
     Route: 048
     Dates: start: 20240217, end: 20240828
  2. PANTOPRAZOLE [Concomitant]
     Active Substance: PANTOPRAZOLE
     Dates: start: 20240805
  3. OLMESARTAN [Concomitant]
     Active Substance: OLMESARTAN
     Dates: start: 20240325
  4. FAMOTIDINE [Concomitant]
     Active Substance: FAMOTIDINE
     Dates: start: 20230503, end: 20240805

REACTIONS (7)
  - Skin exfoliation [None]
  - Headache [None]
  - Irritability [None]
  - Hot flush [None]
  - Temperature intolerance [None]
  - Drug hypersensitivity [None]
  - Therapy cessation [None]

NARRATIVE: CASE EVENT DATE: 20240828
